FAERS Safety Report 25775984 (Version 1)
Quarter: 2025Q3

REPORT INFORMATION
  Report Type: Report from Study
  Country: JP (occurrence: JP)
  Receive Date: 20250909
  Receipt Date: 20250909
  Transmission Date: 20251021
  Serious: Yes (Life-Threatening, Other)
  Sender: ASTELLAS
  Company Number: JP-ASTELLAS-2025-AER-048884

PATIENT
  Age: 63 Year
  Sex: Male
  Weight: 46 kg

DRUGS (24)
  1. VYLOY [Suspect]
     Active Substance: ZOLBETUXIMAB-CLZB
     Indication: Gastric cancer recurrent
     Route: 065
     Dates: start: 20241225, end: 20241225
  2. VYLOY [Suspect]
     Active Substance: ZOLBETUXIMAB-CLZB
     Route: 065
     Dates: start: 20250109, end: 20250109
  3. VYLOY [Suspect]
     Active Substance: ZOLBETUXIMAB-CLZB
     Route: 065
     Dates: start: 20250130, end: 20250417
  4. FLUOROURACIL [Suspect]
     Active Substance: FLUOROURACIL
     Indication: Product used for unknown indication
     Route: 065
     Dates: end: 20241214
  5. FLUOROURACIL [Suspect]
     Active Substance: FLUOROURACIL
     Route: 065
     Dates: start: 20241226, end: 20250319
  6. FLUOROURACIL [Suspect]
     Active Substance: FLUOROURACIL
     Route: 065
     Dates: start: 20250403, end: 20250419
  7. LEVOLEUCOVORIN CALCIUM [Suspect]
     Active Substance: LEVOLEUCOVORIN CALCIUM
     Indication: Product used for unknown indication
     Route: 065
     Dates: end: 20241214
  8. LEVOLEUCOVORIN CALCIUM [Suspect]
     Active Substance: LEVOLEUCOVORIN CALCIUM
     Route: 065
     Dates: start: 20241226, end: 20250319
  9. LEVOLEUCOVORIN CALCIUM [Suspect]
     Active Substance: LEVOLEUCOVORIN CALCIUM
     Route: 065
     Dates: start: 20250403, end: 20250419
  10. OXALIPLATIN [Suspect]
     Active Substance: OXALIPLATIN
     Indication: Product used for unknown indication
     Route: 065
     Dates: end: 20241214
  11. OXALIPLATIN [Suspect]
     Active Substance: OXALIPLATIN
     Route: 065
     Dates: start: 20241226, end: 20250319
  12. DENOSUMAB [Suspect]
     Active Substance: DENOSUMAB
     Indication: Product used for unknown indication
     Route: 065
  13. GRANISETRON [Concomitant]
     Active Substance: GRANISETRON
     Indication: Prophylaxis of nausea and vomiting
     Route: 065
  14. FOSNETUPITANT [Concomitant]
     Active Substance: FOSNETUPITANT
     Indication: Prophylaxis of nausea and vomiting
     Route: 065
  15. DEXAMETHASONE [Concomitant]
     Active Substance: DEXAMETHASONE
     Indication: Prophylaxis of nausea and vomiting
     Route: 065
  16. CHLORPHENIRAMINE [Concomitant]
     Active Substance: CHLORPHENIRAMINE
     Indication: Prophylaxis of nausea and vomiting
     Route: 065
  17. CALCIUM GLUCONATE [Concomitant]
     Active Substance: CALCIUM GLUCONATE
     Indication: Hypocalcaemia
     Route: 050
     Dates: start: 20250106, end: 20250117
  18. CEFTRIAXONE [Concomitant]
     Active Substance: CEFTRIAXONE
     Indication: Pyelonephritis
     Route: 050
     Dates: start: 20250114, end: 20250114
  19. CEFTRIAXONE [Concomitant]
     Active Substance: CEFTRIAXONE
     Indication: Urinary tract infection
     Route: 050
     Dates: start: 20250227, end: 20250303
  20. MEROPENEM [Concomitant]
     Active Substance: MEROPENEM
     Indication: Pyelonephritis
     Route: 050
     Dates: start: 20250115, end: 20250116
  21. MEROPENEM [Concomitant]
     Active Substance: MEROPENEM
     Indication: Sepsis
  22. POTASSIUM ASPARTATE [Concomitant]
     Active Substance: POTASSIUM ASPARTATE
     Indication: Hypokalaemia
     Route: 048
     Dates: start: 20250116, end: 20250123
  23. CEFMETAZOLE [Concomitant]
     Active Substance: CEFMETAZOLE
     Indication: Pyelonephritis
     Route: 050
     Dates: start: 20250117, end: 20250127
  24. CEFMETAZOLE [Concomitant]
     Active Substance: CEFMETAZOLE
     Indication: Sepsis

REACTIONS (9)
  - Pyelonephritis [Recovered/Resolved]
  - Decreased appetite [Recovering/Resolving]
  - Hypocalcaemia [Recovering/Resolving]
  - Platelet count decreased [Recovered/Resolved]
  - Sepsis [Recovered/Resolved]
  - Hypokalaemia [Recovering/Resolving]
  - Urinary tract infection [Recovering/Resolving]
  - Ureterolithiasis [Recovering/Resolving]
  - Hepatic encephalopathy [Recovering/Resolving]

NARRATIVE: CASE EVENT DATE: 20250106
